FAERS Safety Report 20397335 (Version 2)
Quarter: 2022Q1

REPORT INFORMATION
  Report Type: Spontaneous
  Country: US (occurrence: US)
  Receive Date: 20220131
  Receipt Date: 20220201
  Transmission Date: 20220423
  Serious: No
  Sender: FDA-Public Use
  Company Number: US-ABBVIE-21K-163-3771227-00

PATIENT
  Age: 49 Year
  Sex: Female

DRUGS (1)
  1. HUMIRA [Suspect]
     Active Substance: ADALIMUMAB
     Indication: Rheumatoid arthritis
     Route: 058
     Dates: start: 2020

REACTIONS (8)
  - Malaise [Unknown]
  - Accidental exposure to product [Recovered/Resolved]
  - Device delivery system issue [Recovered/Resolved with Sequelae]
  - Rheumatoid arthritis [Unknown]
  - Device issue [Recovered/Resolved]
  - Device difficult to use [Recovered/Resolved]
  - Cardiac disorder [Unknown]
  - Diabetes mellitus [Unknown]

NARRATIVE: CASE EVENT DATE: 20210205
